FAERS Safety Report 8990763 (Version 1)
Quarter: 2012Q4

REPORT INFORMATION
  Report Type: Spontaneous
  Country: US (occurrence: None)
  Receive Date: 20121226
  Receipt Date: 20121226
  Transmission Date: 20130627
  Serious: Yes (Life-Threatening, Hospitalization)
  Sender: FDA-Public Use
  Company Number: None

PATIENT
  Age: 66 Year
  Sex: Male
  Weight: 68 kg

DRUGS (4)
  1. CLOPIDOGREL [Suspect]
     Indication: CORONARY STENT PLACEMENT
     Dosage: 75 MG EVERY DAY PO
     Route: 048
     Dates: start: 20120410, end: 20121102
  2. CLOPIDOGREL [Suspect]
     Indication: CEREBROVASCULAR ACCIDENT PROPHYLAXIS
     Dosage: 75 MG EVERY DAY PO
     Route: 048
     Dates: start: 20120410, end: 20121102
  3. ASPIRIN [Suspect]
     Indication: CORONARY STENT PLACEMENT
     Route: 048
     Dates: start: 20120410, end: 20121102
  4. ASPIRIN [Suspect]
     Indication: CEREBROVASCULAR ACCIDENT PROPHYLAXIS
     Route: 048
     Dates: start: 20120410, end: 20121102

REACTIONS (4)
  - Haemorrhage intracranial [None]
  - Fall [None]
  - Confusional state [None]
  - Head injury [None]
